FAERS Safety Report 11866805 (Version 1)
Quarter: 2015Q4

REPORT INFORMATION
  Report Type: Report from Study
  Country: FR (occurrence: FR)
  Receive Date: 20151224
  Receipt Date: 20151224
  Transmission Date: 20160305
  Serious: Yes (Other)
  Sender: FDA-Public Use
  Company Number: FR-ROCHE-1681004

PATIENT

DRUGS (2)
  1. LEVETIRACETAM. [Suspect]
     Active Substance: LEVETIRACETAM
     Indication: STATUS EPILEPTICUS
     Route: 042
  2. CLONAZEPAM. [Suspect]
     Active Substance: CLONAZEPAM
     Indication: STATUS EPILEPTICUS
     Route: 042

REACTIONS (37)
  - Cardio-respiratory arrest [Unknown]
  - Oesophageal ulcer [Unknown]
  - Subdural haematoma [Unknown]
  - Hypoxia [Unknown]
  - Pneumonia aspiration [Unknown]
  - Haemolytic anaemia [Unknown]
  - Haematemesis [Unknown]
  - Hiatus hernia [Unknown]
  - Extradural haematoma [Unknown]
  - Fall [Unknown]
  - Cerebrovascular accident [Unknown]
  - Acute kidney injury [Unknown]
  - Disseminated intravascular coagulation [Unknown]
  - Haemoglobin decreased [Unknown]
  - Renal failure [Unknown]
  - Haemoptysis [Unknown]
  - Agranulocytosis [Unknown]
  - Cerebral haematoma [Unknown]
  - Acute coronary syndrome [Unknown]
  - Arrhythmia [Unknown]
  - Hepatitis fulminant [Unknown]
  - Encephalopathy [Unknown]
  - Aspiration [Unknown]
  - Empyema [Unknown]
  - Sepsis [Unknown]
  - Hyperthermia [Unknown]
  - Multi-organ failure [Unknown]
  - Septic shock [Unknown]
  - Coma [Unknown]
  - Oesophageal varices haemorrhage [Unknown]
  - Troponin increased [Unknown]
  - Depressed level of consciousness [Unknown]
  - Cardiac arrest [Unknown]
  - Fistula [Unknown]
  - Hydrocephalus [Unknown]
  - Intraventricular haemorrhage [Unknown]
  - Circulatory collapse [Unknown]
